FAERS Safety Report 12833401 (Version 9)
Quarter: 2017Q1

REPORT INFORMATION
  Report Type: Spontaneous
  Country: US (occurrence: US)
  Receive Date: 20161010
  Receipt Date: 20170303
  Transmission Date: 20170428
  Serious: Yes (Death, Hospitalization)
  Sender: FDA-Public Use
  Company Number: US-ACTELION-A-US2016-143393

PATIENT
  Age: 70 Year
  Sex: Male
  Weight: 71.2 kg

DRUGS (3)
  1. TYVASO [Suspect]
     Active Substance: TREPROSTINIL
     Indication: PRODUCT USED FOR UNKNOWN INDICATION
     Route: 065
  2. ADCIRCA [Concomitant]
     Active Substance: TADALAFIL
  3. OPSUMIT [Suspect]
     Active Substance: MACITENTAN
     Indication: PULMONARY HYPERTENSION
     Dosage: 10 MG, QD
     Route: 048
     Dates: start: 20160819

REACTIONS (16)
  - Dyspnoea [Unknown]
  - Fatigue [Unknown]
  - Paraesthesia [Unknown]
  - Pyrexia [Unknown]
  - Swelling [Unknown]
  - Chills [Unknown]
  - Dizziness [Unknown]
  - Cholecystectomy [Unknown]
  - Blood pressure systolic decreased [Unknown]
  - Pain in jaw [Unknown]
  - Pain in extremity [Unknown]
  - Death [Fatal]
  - Vasodilatation [Unknown]
  - Feeling abnormal [Unknown]
  - Cholelithiasis [Unknown]
  - Peripheral swelling [Unknown]

NARRATIVE: CASE EVENT DATE: 20161018
